FAERS Safety Report 4991229-2 (Version None)
Quarter: 2006Q2

REPORT INFORMATION
  Report Type: 
  Country: None (occurrence: None)
  Receive Date: 20060427
  Receipt Date: 20060419
  Transmission Date: 20061013
  Serious: Yes (Life-Threatening, Other)
  Sender: FDA-Public Use
  Company Number: 2006046147

PATIENT
  Age: 68 Year
  Sex: Female

DRUGS (3)
  1. ALDACTONE [Suspect]
     Indication: CONGESTIVE CARDIOMYOPATHY
     Dosage: 25 MG (25 MG, IN THE MORNING)
  2. BELOC-ZOC COMP (HYDROCHLOROTHIAZIDE, METOPROLOL SUCCINATE) [Suspect]
     Indication: CONGESTIVE CARDIOMYOPATHY
     Dosage: 12.5 MG (IN THE MORNING)
  3. CO-RENITEN (ENALAPRIL MALEATE, HYDROCHLOROTHIAZIDE) [Suspect]
     Indication: CONGESTIVE CARDIOMYOPATHY
     Dosage: IN THE MORNING

REACTIONS (14)
  - BUNDLE BRANCH BLOCK [None]
  - CARDIAC VENTRICULAR DISORDER [None]
  - DIALYSIS [None]
  - ELECTROCARDIOGRAM P WAVE ABNORMAL [None]
  - ELECTROCARDIOGRAM PR PROLONGATION [None]
  - ELECTROCARDIOGRAM T WAVE AMPLITUDE INCREASED [None]
  - GENERAL PHYSICAL CONDITION ABNORMAL [None]
  - HEART RATE INCREASED [None]
  - HEART RATE IRREGULAR [None]
  - HYPERKALAEMIA [None]
  - RENAL IMPAIRMENT [None]
  - SINOATRIAL BLOCK [None]
  - THERAPY NON-RESPONDER [None]
  - URINARY TRACT INFECTION [None]
